FAERS Safety Report 6493016-5 (Version None)
Quarter: 2009Q4

REPORT INFORMATION
  Report Type: 
  Country: None (occurrence: None)
  Receive Date: 20091214
  Receipt Date: 20091208
  Transmission Date: 20100525
  Serious: Yes (Other)
  Sender: FDA-Public Use
  Company Number: GB-ROCHE-673511

PATIENT
  Sex: Female

DRUGS (1)
  1. AVASTIN [Suspect]
     Indication: BREAST CANCER
     Route: 065
     Dates: end: 20090701

REACTIONS (5)
  - DEMYELINATION [None]
  - HEADACHE [None]
  - HYPERTENSION [None]
  - JOINT RANGE OF MOTION DECREASED [None]
  - TREMOR [None]
